APPROVED DRUG PRODUCT: MITOMYCIN
Active Ingredient: MITOMYCIN
Strength: 40MG/VIAL
Dosage Form/Route: INJECTABLE;INJECTION
Application: A214504 | Product #001 | TE Code: AP
Applicant: MEITHEAL PHARMACEUTICALS INC
Approved: Sep 6, 2022 | RLD: No | RS: No | Type: RX